FAERS Safety Report 9739214 (Version 2)
Quarter: 2014Q1

REPORT INFORMATION
  Report Type: Report from Study
  Country: JP (occurrence: JP)
  Receive Date: 20131209
  Receipt Date: 20140207
  Transmission Date: 20141002
  Serious: Yes (Death)
  Sender: FDA-Public Use
  Company Number: JP-AMGEN-JPNCT2013085735

PATIENT
  Age: 76 Year
  Sex: Female
  Weight: 42 kg

DRUGS (13)
  1. ROMIPLOSTIM [Suspect]
     Indication: IMMUNE THROMBOCYTOPENIC PURPURA
     Dosage: 8.33 MG/KG, Q2WK
     Route: 058
     Dates: start: 20120217, end: 20130524
  2. BASEN                              /01290601/ [Concomitant]
     Indication: DIABETES MELLITUS
     Dosage: 1 DF, TID
     Route: 048
  3. NOVOLIN 30R                        /00030501/ [Concomitant]
     Indication: DIABETES MELLITUS
     Dosage: UNK
     Route: 065
  4. DIGOSIN [Concomitant]
     Indication: CARDIAC FAILURE
     Dosage: 1 DF, QD
     Route: 048
  5. LASIX                              /00032601/ [Concomitant]
     Indication: CARDIAC FAILURE
     Dosage: 1 DF, QD
     Route: 048
  6. GASTER D [Concomitant]
     Indication: GASTRITIS
     Dosage: 1 DF, BID
     Route: 048
  7. NEUQUINON [Concomitant]
     Indication: CARDIAC FAILURE
     Dosage: 1 DF, TID
     Route: 048
  8. MYSLEE [Concomitant]
     Indication: INSOMNIA
     Dosage: 1 DF, QD
     Route: 048
  9. FERRUM                             /00023502/ [Concomitant]
     Indication: IRON DEFICIENCY ANAEMIA
     Dosage: 1 DF, QD
     Route: 048
  10. METGLUCO [Concomitant]
     Indication: DIABETES MELLITUS
     Dosage: 1 DF, TID
     Route: 048
  11. MAGLAX [Concomitant]
     Indication: CONSTIPATION
     Dosage: 1 DF, TID
     Route: 048
  12. CLINORIL [Concomitant]
     Indication: BACK PAIN
     Dosage: 1 DF, TID
     Route: 048
  13. INNOLET 30R [Concomitant]
     Indication: DIABETES MELLITUS
     Dosage: UNK
     Route: 065

REACTIONS (1)
  - Thrombosis [Fatal]
